FAERS Safety Report 8879978 (Version 1)
Quarter: 2012Q4

REPORT INFORMATION
  Report Type: 
  Country: FR (occurrence: FR)
  Receive Date: 20121031
  Receipt Date: 20121031
  Transmission Date: 20130627
  Serious: Yes (Hospitalization)
  Sender: FDA-Public Use
  Company Number: FR-FRI-1000039936

PATIENT
  Age: 80 Year
  Sex: Female

DRUGS (10)
  1. MILNACIPRAN [Suspect]
     Dosage: 100 mg
     Route: 048
     Dates: start: 2010, end: 20120802
  2. ZYPREXA [Suspect]
     Dosage: 5 mg
     Route: 048
     Dates: start: 20120404
  3. ZYPREXA [Suspect]
     Dosage: 10 mg
     Route: 048
     Dates: end: 20120802
  4. MEMANTINE [Suspect]
     Route: 048
     Dates: start: 2010, end: 20120802
  5. REMINYL [Suspect]
     Dosage: 16 mg
     Route: 048
     Dates: start: 2010, end: 20120802
  6. TAHOR [Suspect]
     Route: 048
  7. DIAMICRON [Concomitant]
  8. ALPRAZOLAM [Concomitant]
  9. LEVOTHYROX [Concomitant]
  10. MOVICOL [Concomitant]

REACTIONS (1)
  - Rhabdomyolysis [Recovering/Resolving]
